FAERS Safety Report 11870659 (Version 3)
Quarter: 2018Q1

REPORT INFORMATION
  Report Type: Spontaneous
  Country: US (occurrence: US)
  Receive Date: 20151228
  Receipt Date: 20180111
  Transmission Date: 20180508
  Serious: Yes (Hospitalization)
  Sender: FDA-Public Use
  Company Number: US-SANOFI-AVENTIS-2012SA019134

PATIENT
  Age: 56 Year
  Sex: Male
  Weight: 86 kg

DRUGS (7)
  1. LEVOTHYROXINE. [Concomitant]
     Active Substance: LEVOTHYROXINE
     Route: 065
  2. ASPIRIN. [Suspect]
     Active Substance: ASPIRIN
     Route: 065
     Dates: start: 20110115, end: 20120227
  3. GLUCOSAMINE [Concomitant]
     Active Substance: GLUCOSAMINE
  4. OMEPRAZOLE. [Concomitant]
     Active Substance: OMEPRAZOLE
  5. IBUPROFEN. [Concomitant]
     Active Substance: IBUPROFEN
     Route: 065
  6. METOPROLOL. [Concomitant]
     Active Substance: METOPROLOL
  7. PLAVIX [Suspect]
     Active Substance: CLOPIDOGREL BISULFATE
     Indication: TRANSIENT ISCHAEMIC ATTACK
     Route: 048
     Dates: start: 20110115, end: 20111021

REACTIONS (16)
  - Gastric polyps [Unknown]
  - Cold sweat [Unknown]
  - Melaena [Unknown]
  - Cerebrovascular accident [Unknown]
  - Diarrhoea [Unknown]
  - Fatigue [Unknown]
  - Productive cough [Unknown]
  - Vomiting [Unknown]
  - Dyspnoea [Unknown]
  - Gastric mucosal hypertrophy [Not Recovered/Not Resolved]
  - Haemoglobin decreased [Unknown]
  - Brain neoplasm [Unknown]
  - Upper gastrointestinal haemorrhage [Unknown]
  - Nausea [Unknown]
  - Anaemia [Unknown]
  - Pyrexia [Unknown]

NARRATIVE: CASE EVENT DATE: 20111021
